FAERS Safety Report 7528825-4 (Version None)
Quarter: 2011Q2

REPORT INFORMATION
  Report Type: 
  Country: None (occurrence: None)
  Receive Date: 20110607
  Receipt Date: 20101221
  Transmission Date: 20111010
  Serious: No
  Sender: FDA-Public Use
  Company Number: US-ASTRAZENECA-2011SE00998

PATIENT

DRUGS (1)
  1. PRILOSEC OTC [Suspect]
     Route: 048
     Dates: start: 20101218, end: 20101221

REACTIONS (1)
  - ERUCTATION [None]
